FAERS Safety Report 7576199-5 (Version None)
Quarter: 2011Q2

REPORT INFORMATION
  Report Type: 
  Country: None (occurrence: None)
  Receive Date: 20110628
  Receipt Date: 20110513
  Transmission Date: 20111010
  Serious: Yes (Hospitalization)
  Sender: FDA-Public Use
  Company Number: US-BAYER-201033941NA

PATIENT
  Age: 19 Year
  Sex: Female
  Weight: 56.689 kg

DRUGS (3)
  1. YASMIN [Suspect]
     Indication: DYSMENORRHOEA
     Dosage: UNK UNK, UNK
     Route: 048
     Dates: start: 20050101, end: 20060101
  2. YAZ [Suspect]
     Indication: PREMENSTRUAL SYNDROME
     Dosage: 1 DF, QD
     Route: 048
     Dates: start: 20060201, end: 20100701
  3. YAZ [Suspect]
     Indication: MUSCLE SPASMS

REACTIONS (10)
  - CHOLECYSTITIS [None]
  - CHOLECYSTITIS CHRONIC [None]
  - POST PROCEDURAL DIARRHOEA [None]
  - GALLBLADDER DISORDER [None]
  - PROCEDURAL PAIN [None]
  - INCISION SITE PAIN [None]
  - NAUSEA [None]
  - CHOLECYSTITIS ACUTE [None]
  - CHOLELITHIASIS [None]
  - ABDOMINAL PAIN UPPER [None]
